FAERS Safety Report 11356566 (Version 1)
Quarter: 2015Q3

REPORT INFORMATION
  Report Type: Spontaneous
  Country: US (occurrence: US)
  Receive Date: 20150803
  Receipt Date: 20150803
  Transmission Date: 20151125
  Serious: No
  Sender: FDA-Public Use
  Company Number: US-ELI_LILLY_AND_COMPANY-US200901000209

PATIENT
  Age: 77 Year
  Sex: Male

DRUGS (1)
  1. ZYPREXA [Suspect]
     Active Substance: OLANZAPINE
     Indication: ANXIETY
     Dosage: 2.5 MG, DAILY (1/D)
     Dates: start: 20081219, end: 20090102

REACTIONS (6)
  - Asthenia [Unknown]
  - Dizziness [Unknown]
  - Dysstasia [Unknown]
  - Chest pain [Recovered/Resolved]
  - Drug ineffective [Unknown]
  - Feeling abnormal [Unknown]

NARRATIVE: CASE EVENT DATE: 20090103
